FAERS Safety Report 8154667 (Version 3)
Quarter: 2013Q4

REPORT INFORMATION
  Report Type: Spontaneous
  Country: US (occurrence: US)
  Receive Date: 20110923
  Receipt Date: 20131206
  Transmission Date: 20140711
  Serious: Yes (Hospitalization)
  Sender: FDA-Public Use
  Company Number: US-GLAXOSMITHKLINE-A0915646A

PATIENT
  Age: 66 Year
  Sex: Male

DRUGS (1)
  1. AVANDIA [Suspect]
     Indication: DIABETES MELLITUS
     Dosage: 2MG FOUR TIMES PER DAY
     Route: 048
     Dates: start: 200404, end: 200712

REACTIONS (9)
  - Cerebrovascular accident [Not Recovered/Not Resolved]
  - Angina pectoris [Unknown]
  - Chest pain [Unknown]
  - Cardiovascular disorder [Unknown]
  - Cardiac disorder [Unknown]
  - Coronary artery disease [Unknown]
  - Lung disorder [Unknown]
  - Cardiac failure congestive [Unknown]
  - Coronary artery bypass [Unknown]
